FAERS Safety Report 21484024 (Version 3)
Quarter: 2022Q4

REPORT INFORMATION
  Report Type: Spontaneous
  Country: US (occurrence: US)
  Receive Date: 20221020
  Receipt Date: 20221020
  Transmission Date: 20230112
  Serious: No
  Sender: FDA-Public Use
  Company Number: US-ALLERGAN-2220357US

PATIENT

DRUGS (3)
  1. LINZESS [Suspect]
     Active Substance: LINACLOTIDE
     Indication: Irritable bowel syndrome
     Dosage: 290 ?G
  2. LINZESS [Suspect]
     Active Substance: LINACLOTIDE
     Indication: Irritable bowel syndrome
     Dosage: 145 ?G
  3. LINZESS [Suspect]
     Active Substance: LINACLOTIDE
     Indication: Irritable bowel syndrome
     Dosage: 72 ?G

REACTIONS (3)
  - Product use in unapproved indication [Unknown]
  - Drug ineffective [Unknown]
  - Abdominal pain upper [Unknown]
